FAERS Safety Report 26179365 (Version 1)
Quarter: 2025Q4

REPORT INFORMATION
  Report Type: Spontaneous
  Country: US (occurrence: US)
  Receive Date: 20251219
  Receipt Date: 20251219
  Transmission Date: 20260118
  Serious: Yes (Death, Other)
  Sender: BIOVITRUM
  Company Number: US-BIOVITRUM-2025-US-017790

PATIENT
  Age: 9 Month

DRUGS (1)
  1. GAMIFANT [Suspect]
     Active Substance: EMAPALUMAB-LZSG
     Indication: Haemophagocytic lymphohistiocytosis
     Route: 042

REACTIONS (2)
  - Death [Fatal]
  - Abnormal organ growth [Unknown]
